FAERS Safety Report 11852575 (Version 4)
Quarter: 2016Q1

REPORT INFORMATION
  Report Type: Spontaneous
  Country: US (occurrence: US)
  Receive Date: 20151218
  Receipt Date: 20160229
  Transmission Date: 20160526
  Serious: Yes (Other)
  Sender: FDA-Public Use
  Company Number: US-LPDUSPRD-20151026

PATIENT
  Age: 14 Month
  Sex: Male
  Weight: 13 kg

DRUGS (3)
  1. ESMOLOL HYDROCHLORIDE INJECTION (0517-1810-01) [Suspect]
     Active Substance: ESMOLOL HYDROCHLORIDE
     Dosage: DOSE NOT STATED; LOADING DOSE
     Route: 042
  2. ADENOSINE. [Concomitant]
     Active Substance: ADENOSINE
     Dosage: 400 MCG/KG
     Route: 065
  3. AMIODARONE [Suspect]
     Active Substance: AMIODARONE
     Dosage: 5 MG/KG
     Route: 042

REACTIONS (1)
  - Cardiac output decreased [Unknown]
